FAERS Safety Report 8236986-7 (Version None)
Quarter: 2012Q1

REPORT INFORMATION
  Report Type: 
  Country: None (occurrence: None)
  Receive Date: 20120327
  Receipt Date: 20120320
  Transmission Date: 20120608
  Serious: Yes (Other)
  Sender: FDA-Public Use
  Company Number: PHHY2012BR025121

PATIENT
  Age: 52 Year
  Sex: Female

DRUGS (2)
  1. SYNTHROID [Concomitant]
     Dosage: 112 UG, UNK
     Route: 048
  2. TRILEPTAL [Suspect]
     Indication: EPILEPSY
     Dosage: 300 MG AT NIGHT, QD
     Route: 048
     Dates: start: 20080101

REACTIONS (9)
  - CALCINOSIS [None]
  - NAUSEA [None]
  - VOMITING [None]
  - JOINT DISLOCATION [None]
  - MALAISE [None]
  - FATIGUE [None]
  - ARTHRALGIA [None]
  - SOMNOLENCE [None]
  - INFECTIVE MYOSITIS [None]
